FAERS Safety Report 8052181-9 (Version None)
Quarter: 2012Q1

REPORT INFORMATION
  Report Type: 
  Country: None (occurrence: None)
  Receive Date: 20120118
  Receipt Date: 20120116
  Transmission Date: 20120608
  Serious: Yes (Other)
  Sender: FDA-Public Use
  Company Number: DE-BAYER-2012-000744

PATIENT
  Age: 36 Year
  Sex: Female

DRUGS (2)
  1. UNKNOWN DRUG [Suspect]
  2. DROSPIRENONE AND ETHINYL ESTRADIOL [Suspect]
     Indication: CONTRACEPTION
     Dosage: UNK
     Dates: start: 20070517, end: 20070521

REACTIONS (1)
  - AUTOIMMUNE THROMBOCYTOPENIA [None]
